FAERS Safety Report 15712435 (Version 1)
Quarter: 2018Q4

REPORT INFORMATION
  Report Type: Spontaneous
  Country: FR (occurrence: FR)
  Receive Date: 20181212
  Receipt Date: 20181212
  Transmission Date: 20190205
  Serious: Yes (Hospitalization)
  Sender: FDA-Public Use
  Company Number: FR-TEVA-2018-FR-984894

PATIENT
  Age: 73 Year
  Sex: Female

DRUGS (8)
  1. MOPRAL [Concomitant]
     Active Substance: OMEPRAZOLE
     Dosage: NR
     Route: 046
  2. AMOXICILLINE [Suspect]
     Active Substance: AMOXICILLIN
     Indication: ENDOCARDITIS
     Dosage: 16 GRAM DAILY;
     Route: 048
     Dates: start: 20180618, end: 20180704
  3. LASILIX 40 MG, SCORED TABLET [Concomitant]
     Active Substance: FUROSEMIDE
     Dosage: 1 DOSAGE FORMS DAILY;
     Route: 048
  4. COUMADINE 2 MG, SCORED TABLET [Concomitant]
     Dosage: 2 DOSAGE FORMS DAILY;  SCORED TABLET
     Route: 048
  5. ZYRTEC [Concomitant]
     Active Substance: CETIRIZINE HYDROCHLORIDE
     Dosage: 10 MILLIGRAM DAILY;
     Route: 048
  6. AMOXICILLINE [Suspect]
     Active Substance: AMOXICILLIN
     Indication: ENDOCARDITIS
     Dosage: 16 GRAM DAILY;
     Route: 040
     Dates: start: 20180705, end: 20180727
  7. DOLIPRANE [Concomitant]
     Active Substance: ACETAMINOPHEN
     Dosage: 3 GRAM DAILY;
     Route: 048
  8. DIFFU K, CAPSULE [Concomitant]
     Active Substance: POTASSIUM CHLORIDE
     Dosage: 1 DOSAGE FORMS DAILY;
     Route: 048

REACTIONS (1)
  - Acute kidney injury [Recovering/Resolving]

NARRATIVE: CASE EVENT DATE: 20180727
